FAERS Safety Report 15524777 (Version 1)
Quarter: 2018Q4

REPORT INFORMATION
  Report Type: Spontaneous
  Country: US (occurrence: US)
  Receive Date: 20181019
  Receipt Date: 20181019
  Transmission Date: 20190205
  Serious: Yes (Other)
  Sender: FDA-Public Use
  Company Number: US-SHIRE-US201839229

PATIENT
  Age: 61 Year
  Sex: Male

DRUGS (1)
  1. 476 (MESALAZINE/MESALAMINE) [Suspect]
     Active Substance: MESALAMINE
     Indication: COLITIS ULCERATIVE
     Dosage: 1600 MG, 2X/DAY:BID
     Route: 065

REACTIONS (2)
  - Pathogen resistance [Recovering/Resolving]
  - Pulmonary eosinophilia [Recovering/Resolving]
